FAERS Safety Report 21490380 (Version 1)
Quarter: 2022Q4

REPORT INFORMATION
  Report Type: Spontaneous
  Country: CA (occurrence: CA)
  Receive Date: 20221021
  Receipt Date: 20221021
  Transmission Date: 20230112
  Serious: Yes (Hospitalization)
  Sender: FDA-Public Use
  Company Number: CA-BAXTER-2022BAX022361

PATIENT
  Age: 70 Year
  Sex: Male

DRUGS (4)
  1. DOXORUBICIN [Suspect]
     Active Substance: DOXORUBICIN
     Indication: Neuroectodermal neoplasm
     Dosage: DOSAGE FORM: NOT SPECIFIED
     Route: 065
  2. DOXORUBICIN [Suspect]
     Active Substance: DOXORUBICIN
     Indication: Gastrointestinal carcinoma
  3. OLARATUMAB [Suspect]
     Active Substance: OLARATUMAB
     Indication: Neuroectodermal neoplasm
     Dosage: UNK
     Route: 065
  4. OLARATUMAB [Suspect]
     Active Substance: OLARATUMAB
     Indication: Gastrointestinal carcinoma

REACTIONS (1)
  - Drug ineffective [Unknown]
